FAERS Safety Report 13956184 (Version 2)
Quarter: 2017Q4

REPORT INFORMATION
  Report Type: Spontaneous
  Country: JP (occurrence: JP)
  Receive Date: 20170911
  Receipt Date: 20171101
  Transmission Date: 20180320
  Serious: Yes (Other)
  Sender: FDA-Public Use
  Company Number: JP-MYLANLABS-2017M1055178

PATIENT
  Age: 51 Year
  Sex: Male

DRUGS (1)
  1. PREDNISOLONE. [Suspect]
     Active Substance: PREDNISOLONE
     Indication: VASCULITIS
     Dosage: 40 MG, QD
     Route: 065

REACTIONS (4)
  - Respiratory failure [Recovering/Resolving]
  - Mycobacterium kansasii infection [Recovering/Resolving]
  - Myelodysplastic syndrome [Unknown]
  - Pancytopenia [Recovering/Resolving]
